FAERS Safety Report 14029422 (Version 1)
Quarter: 2017Q4

REPORT INFORMATION
  Report Type: Spontaneous
  Country: US (occurrence: US)
  Receive Date: 20171002
  Receipt Date: 20171002
  Transmission Date: 20180321
  Serious: No
  Sender: FDA-Public Use
  Company Number: US-JAZZ-2017-US-011178

PATIENT
  Sex: Female

DRUGS (15)
  1. XYREM [Suspect]
     Active Substance: SODIUM OXYBATE
     Indication: CATAPLEXY
     Dosage: DOSE ADJUSTMENT
     Route: 048
     Dates: start: 201605, end: 201611
  2. AZITHROMYCIN ANHYDROUS. [Concomitant]
     Active Substance: AZITHROMYCIN ANHYDROUS
  3. ROCEPHIN [Concomitant]
     Active Substance: CEFTRIAXONE SODIUM
  4. XYREM [Suspect]
     Active Substance: SODIUM OXYBATE
     Indication: NARCOLEPSY
     Dosage: 2.25G, BID
     Route: 048
     Dates: start: 201605, end: 201605
  5. ALKA SELTZER PLUS COLD + COUGH FORMULA [Concomitant]
  6. ALOSETRON HCL [Concomitant]
     Active Substance: ALOSETRON HYDROCHLORIDE
  7. NUVIGIL [Concomitant]
     Active Substance: ARMODAFINIL
  8. TYLENOL [Concomitant]
     Active Substance: ACETAMINOPHEN
  9. XYREM [Suspect]
     Active Substance: SODIUM OXYBATE
     Dosage: 4.5G, BID
     Route: 048
     Dates: start: 201611
  10. EXCEDRIN [Concomitant]
     Active Substance: ACETAMINOPHEN\ASPIRIN\CAFFEINE
  11. METHYLPHENIDATE. [Concomitant]
     Active Substance: METHYLPHENIDATE
  12. ALBUTEROL SULFATE. [Concomitant]
     Active Substance: ALBUTEROL SULFATE
  13. VENLAFAXINE HCL [Concomitant]
     Active Substance: VENLAFAXINE HYDROCHLORIDE
  14. DICYCLOMINE                        /00068601/ [Concomitant]
     Active Substance: DICYCLOMINE HYDROCHLORIDE
  15. DIPHENOXYLATE/ATROPINE [Concomitant]
     Active Substance: ATROPINE\DIPHENOXYLATE

REACTIONS (3)
  - Anxiety [Unknown]
  - Panic attack [Unknown]
  - Irritability [Unknown]
